FAERS Safety Report 20654648 (Version 1)
Quarter: 2022Q1

REPORT INFORMATION
  Report Type: Spontaneous
  Country: US (occurrence: US)
  Receive Date: 20220330
  Receipt Date: 20220330
  Transmission Date: 20220423
  Serious: Yes (Death, Other)
  Sender: FDA-Public Use
  Company Number: US-PFIZER INC-202200443549

PATIENT
  Age: 71 Year
  Sex: Female

DRUGS (1)
  1. FENTANYL CITRATE [Suspect]
     Active Substance: FENTANYL CITRATE
     Dosage: UNK
     Route: 048
     Dates: start: 20070101

REACTIONS (11)
  - Colitis [Fatal]
  - COVID-19 [Fatal]
  - Cholecystitis [Fatal]
  - Cholestasis [Unknown]
  - Nausea [Not Recovered/Not Resolved]
  - Gallbladder disorder [Unknown]
  - Cholelithiasis [Unknown]
  - White blood cell count increased [Unknown]
  - Aspartate aminotransferase increased [Unknown]
  - Blood bilirubin increased [Unknown]
  - Asthenia [Unknown]

NARRATIVE: CASE EVENT DATE: 20220101
